FAERS Safety Report 9331360 (Version 1)
Quarter: 2013Q2

REPORT INFORMATION
  Report Type: Spontaneous
  Country: US (occurrence: US)
  Receive Date: 20130605
  Receipt Date: 20130605
  Transmission Date: 20140414
  Serious: Yes (Death, Other)
  Sender: FDA-Public Use
  Company Number: US-AMGEN-USASP2013039155

PATIENT
  Age: 70 Year
  Sex: Male

DRUGS (2)
  1. ARANESP [Suspect]
     Indication: INTERNATIONAL NORMALISED RATIO DECREASED
  2. IRON [Concomitant]

REACTIONS (10)
  - Death [Fatal]
  - Anti-erythrocyte antibody [Unknown]
  - Renal impairment [Recovered/Resolved]
  - Localised intraabdominal fluid collection [Unknown]
  - Feeling cold [Unknown]
  - Pupils unequal [Unknown]
  - Malabsorption [Unknown]
  - Weight decreased [Unknown]
  - Epistaxis [Unknown]
  - Cough [Unknown]
